FAERS Safety Report 4646752-7 (Version None)
Quarter: 2005Q2

REPORT INFORMATION
  Report Type: 
  Country: None (occurrence: None)
  Receive Date: 20050425
  Receipt Date: 20050425
  Transmission Date: 20051028
  Serious: Yes (Hospitalization)
  Sender: FDA-Public Use
  Company Number: None

PATIENT
  Age: 51 Year
  Sex: Male
  Weight: 76.6579 kg

DRUGS (1)
  1. BUPROPION   150MG [Suspect]
     Indication: DEPRESSION
     Dosage: 150MG  BID  ORAL
     Route: 048
     Dates: start: 20041027, end: 20041103

REACTIONS (2)
  - HALLUCINATION, VISUAL [None]
  - NIGHTMARE [None]
